FAERS Safety Report 15754771 (Version 2)
Quarter: 2022Q1

REPORT INFORMATION
  Report Type: Spontaneous
  Country: CH (occurrence: CH)
  Receive Date: 20181224
  Receipt Date: 20220131
  Transmission Date: 20220423
  Serious: Yes (Hospitalization)
  Sender: FDA-Public Use
  Company Number: CH-SM-2018-14580

PATIENT
  Age: 57 Year
  Sex: Female
  Weight: 100 kg

DRUGS (4)
  1. NAPROXEN [Suspect]
     Active Substance: NAPROXEN
     Indication: Allergy test
     Route: 048
     Dates: start: 20181120
  2. PANTOPRAZOLE [Suspect]
     Active Substance: PANTOPRAZOLE
     Dosage: SINGLE DOSE ON 20 NOVEMBER 2018
     Route: 048
  3. NIFEDIPINE [Concomitant]
     Active Substance: NIFEDIPINE
     Dates: end: 20181119
  4. METOPROLOL SUCCINATE [Concomitant]
     Active Substance: METOPROLOL SUCCINATE
     Dates: end: 20181119

REACTIONS (8)
  - Anaphylactic reaction [Recovered/Resolved]
  - Flushing [Recovered/Resolved]
  - Dyspnoea [Recovered/Resolved]
  - Panic reaction [Recovered/Resolved]
  - Dysphonia [Recovered/Resolved]
  - Hypotonia [Recovered/Resolved]
  - Tachycardia [Recovered/Resolved]
  - Atrial fibrillation [Recovered/Resolved]
